FAERS Safety Report 21402608 (Version 1)
Quarter: 2022Q4

REPORT INFORMATION
  Report Type: Spontaneous
  Country: DE (occurrence: DE)
  Receive Date: 20221003
  Receipt Date: 20221003
  Transmission Date: 20230112
  Serious: Yes (Hospitalization)
  Sender: FDA-Public Use
  Company Number: DE-OTSUKA-2022_046679

PATIENT
  Age: 65 Year
  Sex: Female
  Weight: 54 kg

DRUGS (3)
  1. DACOGEN [Suspect]
     Active Substance: DECITABINE
     Indication: Product used for unknown indication
     Dosage: SCHEMA
     Route: 042
  2. VENETOCLAX [Suspect]
     Active Substance: VENETOCLAX
     Indication: Product used for unknown indication
     Dosage: UNK
     Route: 065
  3. FERRO-SANOL DUODENAL [Concomitant]
     Active Substance: FERROUS GLYCINE SULFATE
     Indication: Product used for unknown indication
     Dosage: 100 MG, QD
     Route: 065

REACTIONS (9)
  - Condition aggravated [Unknown]
  - Fasciitis [Unknown]
  - General physical health deterioration [Unknown]
  - Systemic infection [Unknown]
  - Musculoskeletal pain [Unknown]
  - Hyponatraemia [Unknown]
  - Pyrexia [Unknown]
  - Pancytopenia [Unknown]
  - Anaemia [Unknown]
